FAERS Safety Report 16637904 (Version 2)
Quarter: 2019Q3

REPORT INFORMATION
  Report Type: Spontaneous
  Country: BE (occurrence: BE)
  Receive Date: 20190726
  Receipt Date: 20190927
  Transmission Date: 20191004
  Serious: Yes (Other)
  Sender: FDA-Public Use
  Company Number: BE-ASTRAZENECA-2019SF05671

PATIENT
  Age: 30186 Day
  Sex: Female
  Weight: 83 kg

DRUGS (7)
  1. NOBITEN [Concomitant]
     Active Substance: NEBIVOLOL
  2. TAGRISSO [Suspect]
     Active Substance: OSIMERTINIB
     Indication: NON-SMALL CELL LUNG CANCER
     Route: 048
     Dates: start: 20180925, end: 20190520
  3. BELSAR [Concomitant]
  4. FLUDEX [Concomitant]
  5. MOXONIDINE [Concomitant]
     Active Substance: MOXONIDINE
  6. TAGRISSO [Suspect]
     Active Substance: OSIMERTINIB
     Indication: NON-SMALL CELL LUNG CANCER
     Route: 048
     Dates: start: 20190613, end: 20190626
  7. TAGRISSO [Suspect]
     Active Substance: OSIMERTINIB
     Indication: NON-SMALL CELL LUNG CANCER
     Route: 048
     Dates: end: 20190715

REACTIONS (1)
  - Renal failure [Recovering/Resolving]

NARRATIVE: CASE EVENT DATE: 20190520
